FAERS Safety Report 7994898-8 (Version None)
Quarter: 2011Q4

REPORT INFORMATION
  Report Type: 
  Country: None (occurrence: None)
  Receive Date: 20111217
  Receipt Date: 20111217
  Transmission Date: 20120403
  Serious: No
  Sender: FDA-Public Use
  Company Number: None

PATIENT

DRUGS (2)
  1. CIPROFLOXACIN [Suspect]
  2. LEVAQUIN [Suspect]
     Dosage: 750 MG IV
     Route: 042

REACTIONS (12)
  - NEUROPATHY PERIPHERAL [None]
  - GAIT DISTURBANCE [None]
  - MEDICATION ERROR [None]
  - PLEURAL EFFUSION [None]
  - DIARRHOEA [None]
  - FAECAL INCONTINENCE [None]
  - TRANSFUSION REACTION [None]
  - WEIGHT DECREASED [None]
  - FALL [None]
  - MUSCLE ATROPHY [None]
  - PNEUMOTHORAX [None]
  - ANAEMIA [None]
